FAERS Safety Report 5444642-3 (Version None)
Quarter: 2007Q3

REPORT INFORMATION
  Report Type: 
  Country: None (occurrence: None)
  Receive Date: 20070906
  Receipt Date: 20070314
  Transmission Date: 20080115
  Serious: No
  Sender: FDA-Public Use
  Company Number: A0629706A

PATIENT
  Age: 55 Year
  Sex: Female

DRUGS (10)
  1. REQUIP [Suspect]
     Indication: RESTLESS LEGS SYNDROME
     Dosage: .5MG AS REQUIRED
     Route: 048
     Dates: start: 20040401
  2. SONATA [Concomitant]
  3. SEROQUEL [Concomitant]
  4. SULPHACETAMIDE [Concomitant]
  5. VALTREX [Concomitant]
  6. TAZORAC [Concomitant]
  7. CLOBETASOL PROPIONATE [Concomitant]
  8. EMLA TOPICAL CREAM [Concomitant]
  9. CYCLOBENZAPRINE HCL [Concomitant]
  10. VOLTAREN [Concomitant]

REACTIONS (3)
  - DRUG INEFFECTIVE [None]
  - OVERDOSE [None]
  - PHARMACEUTICAL PRODUCT COMPLAINT [None]
